FAERS Safety Report 7134145-2 (Version None)
Quarter: 2010Q4

REPORT INFORMATION
  Report Type: 
  Country: None (occurrence: None)
  Receive Date: 20101203
  Receipt Date: 20101123
  Transmission Date: 20110411
  Serious: Yes (Other)
  Sender: FDA-Public Use
  Company Number: CA-JNJFOC-20101109095

PATIENT
  Sex: Male
  Weight: 80 kg

DRUGS (7)
  1. REMICADE [Suspect]
     Indication: RHEUMATOID ARTHRITIS
     Route: 042
  2. REMICADE [Suspect]
     Route: 042
  3. WARFARIN [Concomitant]
     Route: 048
  4. RAMIPRIL [Concomitant]
     Route: 048
  5. NORVASC [Concomitant]
     Route: 048
  6. REMINYL [Concomitant]
     Route: 048
  7. GARLIC [Concomitant]

REACTIONS (4)
  - ARTHROPATHY [None]
  - DEMENTIA [None]
  - MOVEMENT DISORDER [None]
  - PAIN IN EXTREMITY [None]
